FAERS Safety Report 8853884 (Version 2)
Quarter: 2013Q2

REPORT INFORMATION
  Report Type: Spontaneous
  Country: US (occurrence: None)
  Receive Date: 20120426
  Receipt Date: 20130107
  Transmission Date: 20140414
  Serious: Yes (Other)
  Sender: FDA-Public Use
  Company Number: PHEH2011US011545

PATIENT
  Sex: Female

DRUGS (3)
  1. GILENYA [Suspect]
     Route: 048
     Dates: start: 20111123
  2. PANTOPRAZOLE (PANTOPRAZOLE) [Concomitant]
  3. ADDERALL (AMFETAMINE ASPARTATE, AMFETAMINE SULFATE, DEXAMPHETAMINE SACCHARATE, DEXAMFETAMINE SULFATE) [Concomitant]

REACTIONS (3)
  - Malaise [None]
  - Musculoskeletal stiffness [None]
  - Fatigue [None]
